FAERS Safety Report 25878308 (Version 1)
Quarter: 2025Q4

REPORT INFORMATION
  Report Type: Spontaneous
  Country: JP (occurrence: JP)
  Receive Date: 20251003
  Receipt Date: 20251003
  Transmission Date: 20260117
  Serious: Yes (Other)
  Sender: PFIZER
  Company Number: JP-PFIZER INC-202500194009

PATIENT
  Age: 65 Year
  Sex: Male

DRUGS (1)
  1. AZITHROMYCIN DIHYDRATE [Suspect]
     Active Substance: AZITHROMYCIN DIHYDRATE
     Indication: Bronchiolitis
     Dosage: 250MG 2 TABLETS ORALLY, ONCE A DAY, FOR 3 DAYS
     Route: 048

REACTIONS (2)
  - Bronchiolitis [Not Recovered/Not Resolved]
  - Disease progression [Not Recovered/Not Resolved]
